FAERS Safety Report 4439295-7 (Version None)
Quarter: 2004Q3

REPORT INFORMATION
  Report Type: 
  Country: None (occurrence: None)
  Receive Date: 20040831
  Receipt Date: 20040816
  Transmission Date: 20050211
  Serious: Yes (Death, Life-Threatening)
  Sender: FDA-Public Use
  Company Number: 04P-163-0270881-00

PATIENT
  Age: 54 Year
  Sex: Male
  Weight: 81.6475 kg

DRUGS (16)
  1. GENGRAF [Suspect]
     Dates: start: 19970105, end: 20031001
  2. INSULIN GLARGINE [Concomitant]
  3. HUMULOG SS [Concomitant]
  4. ACETYLSALICYLIC ACID [Concomitant]
  5. PREDNISONE [Concomitant]
  6. BENAZEPRIL HCL [Concomitant]
  7. OMEPRAZOLE [Concomitant]
  8. FERROUS SULFATE TAB [Concomitant]
  9. DOXAZOSIN [Concomitant]
  10. ATORVASTATIN CALCIUM [Concomitant]
  11. AMLODIPINE BESYLATE [Concomitant]
  12. HYDRALAZINE HCL [Concomitant]
  13. CLONIDINE HCL [Concomitant]
  14. METOPROLOL [Concomitant]
  15. EPOGEN [Concomitant]
  16. ALENDRONATE SODIUM [Concomitant]

REACTIONS (2)
  - MYOCARDIAL INFARCTION [None]
  - OEDEMA PERIPHERAL [None]
